FAERS Safety Report 11267529 (Version 1)
Quarter: 2015Q3

REPORT INFORMATION
  Report Type: Spontaneous
  Country: US (occurrence: US)
  Receive Date: 20150713
  Receipt Date: 20150713
  Transmission Date: 20151125
  Serious: Yes (Hospitalization)
  Sender: FDA-Public Use
  Company Number: US-MPIJNJ-2013MPI000540

PATIENT
  Age: 66 Year
  Sex: Male
  Weight: 96.6 kg

DRUGS (25)
  1. ASPIRINE [Concomitant]
     Active Substance: ASPIRIN
     Indication: THROMBOSIS PROPHYLAXIS
     Dosage: 162.5 MG, QD
     Route: 048
     Dates: start: 20130613
  2. SENNA [Concomitant]
     Active Substance: SENNA LEAF\SENNOSIDES\SENNOSIDES A AND B
     Indication: CONSTIPATION
     Dosage: UNK
     Route: 048
     Dates: start: 20130701
  3. VELCADE [Suspect]
     Active Substance: BORTEZOMIB
     Indication: PLASMA CELL MYELOMA
     Dosage: 1.3 MG/M2, ON DAYS 1, 4, 8 AN 11
     Route: 042
     Dates: start: 20130621, end: 20130701
  4. ALPRAZOLAM. [Concomitant]
     Active Substance: ALPRAZOLAM
     Indication: ANXIETY
     Dosage: 0.25 MG, BID
     Route: 048
     Dates: start: 20060101
  5. LEXAPRO [Concomitant]
     Active Substance: ESCITALOPRAM OXALATE
     Indication: ANXIETY
     Dosage: 10 MG, QD
     Route: 048
     Dates: start: 20061001
  6. ONDASETRON                         /00955301/ [Concomitant]
     Indication: NAUSEA
     Dosage: 8 MG, UNK
     Route: 048
     Dates: start: 20070101
  7. POMALIDOMIDE [Suspect]
     Active Substance: POMALIDOMIDE
     Dosage: 4 MG, QD
     Route: 048
     Dates: start: 20130826, end: 20130908
  8. DEXAMETHASONE. [Suspect]
     Active Substance: DEXAMETHASONE
     Indication: PLASMA CELL MYELOMA
     Dosage: 20 MG, ON DAYS 1, 2, 4, 5, 8, 9, 11 AND 12
     Route: 048
     Dates: start: 20130621, end: 20130704
  9. FISH OIL [Concomitant]
     Active Substance: FISH OIL
     Indication: VITAMIN SUPPLEMENTATION
     Dosage: UNK, QD
     Route: 048
     Dates: start: 20100101
  10. CRESTOR [Concomitant]
     Active Substance: ROSUVASTATIN CALCIUM
     Indication: HYPERLIPIDAEMIA
     Dosage: 5 MG, QD
     Route: 048
     Dates: start: 20000101
  11. VELCADE [Suspect]
     Active Substance: BORTEZOMIB
     Dosage: 1.3 MG/M2, ON DAYS 1, 4, 8 AN 11
     Route: 042
     Dates: start: 20130826, end: 20130906
  12. LYRICA [Concomitant]
     Active Substance: PREGABALIN
     Indication: NEUROPATHY PERIPHERAL
     Dosage: 75 MG, BID
     Route: 048
     Dates: start: 20070608
  13. SODIUM CHLORIDE. [Concomitant]
     Active Substance: SODIUM CHLORIDE
     Indication: RHINITIS ALLERGIC
     Dosage: UNK
     Route: 045
     Dates: start: 20090115
  14. OXYCODONE [Concomitant]
     Active Substance: OXYCODONE
     Indication: BONE PAIN
     Dosage: 10 MG, UNK
     Route: 048
     Dates: start: 20060101
  15. CEFUROXIME. [Concomitant]
     Active Substance: CEFUROXIME
     Indication: INFECTION PROPHYLAXIS
     Dosage: 250 MG, BID
     Route: 048
     Dates: start: 20130723, end: 20130910
  16. METOPROLOL [Concomitant]
     Active Substance: METOPROLOL
     Indication: TACHYCARDIA
     Dosage: 12.5 MG, BID
     Route: 048
     Dates: start: 20130802, end: 20130815
  17. CALCIUM D3 STADA [Concomitant]
     Indication: VITAMIN SUPPLEMENTATION
     Dosage: UNK, QD
     Route: 048
     Dates: start: 20010101
  18. MULTIVITAMIN                       /00097801/ [Concomitant]
     Active Substance: VITAMINS
     Indication: VITAMIN SUPPLEMENTATION
     Dosage: UNK, QD
     Route: 048
     Dates: start: 19900101
  19. VALACICLOVIR [Concomitant]
     Active Substance: VALACYCLOVIR HYDROCHLORIDE
     Indication: INFECTION PROPHYLAXIS
     Dosage: 500 MG, BID
     Route: 048
     Dates: start: 20130613
  20. MILK OF MAGNESIA [Concomitant]
     Active Substance: MAGNESIUM HYDROXIDE
     Indication: CONSTIPATION
     Dosage: UNK
     Route: 048
     Dates: start: 20130701
  21. POMALIDOMIDE [Suspect]
     Active Substance: POMALIDOMIDE
     Indication: PLASMA CELL MYELOMA
     Dosage: 4 MG, QD
     Route: 048
     Dates: start: 20130621, end: 20130704
  22. OMEPRAZOLE. [Concomitant]
     Active Substance: OMEPRAZOLE
     Indication: GASTROOESOPHAGEAL REFLUX DISEASE
     Dosage: 20 MG, QD
     Route: 048
     Dates: start: 20110712
  23. SINGULAIR [Concomitant]
     Active Substance: MONTELUKAST SODIUM
     Indication: CHRONIC SINUSITIS
     Dosage: 10 MG, QD
     Route: 048
     Dates: start: 20080108
  24. DEXAMETHASONE. [Suspect]
     Active Substance: DEXAMETHASONE
     Dosage: 20 MG, ON DAYS 1, 2, 4, 5, 8, 9, 11 AND 12
     Route: 048
     Dates: start: 20130826, end: 20130907
  25. FLUTICASONE [Concomitant]
     Active Substance: FLUTICASONE\FLUTICASONE PROPIONATE
     Indication: RHINITIS ALLERGIC
     Dosage: UNK, BID
     Route: 045
     Dates: start: 20090101

REACTIONS (1)
  - Orthostatic hypotension [Recovered/Resolved]

NARRATIVE: CASE EVENT DATE: 20130910
